FAERS Safety Report 11417187 (Version 1)
Quarter: 2015Q3

REPORT INFORMATION
  Report Type: Spontaneous
  Country: US (occurrence: US)
  Receive Date: 20150825
  Receipt Date: 20150825
  Transmission Date: 20151125
  Serious: No
  Sender: FDA-Public Use
  Company Number: US-TAKEDA-2015TUS011169

PATIENT
  Age: 10 Year
  Sex: Female
  Weight: 54.88 kg

DRUGS (12)
  1. GABAPENTIN. [Concomitant]
     Active Substance: GABAPENTIN
     Indication: COMPLEX REGIONAL PAIN SYNDROME
     Dosage: 600 MG, UNK
     Route: 048
     Dates: start: 201507
  2. VITAMIN C [Concomitant]
     Active Substance: ASCORBIC ACID
     Indication: VITAMIN C DECREASED
     Dosage: 500 MG, UNK
     Route: 048
     Dates: start: 201506
  3. FLEXERIL [Concomitant]
     Active Substance: CYCLOBENZAPRINE HYDROCHLORIDE
     Indication: COMPLEX REGIONAL PAIN SYNDROME
     Dosage: 50 MG, UNK
     Route: 048
     Dates: start: 201506
  4. MIRALAX [Concomitant]
     Active Substance: POLYETHYLENE GLYCOL 3350
     Indication: COELIAC DISEASE
     Dosage: UNK
     Route: 048
  5. TRAZODONE [Concomitant]
     Active Substance: TRAZODONE HYDROCHLORIDE
     Indication: COMPLEX REGIONAL PAIN SYNDROME
     Dosage: 50 MG, UNK
     Route: 048
     Dates: start: 201506
  6. ACETAMINOPHEN. [Concomitant]
     Active Substance: ACETAMINOPHEN
     Indication: COMPLEX REGIONAL PAIN SYNDROME
     Dosage: 500 MG, UNK
     Route: 048
     Dates: start: 201506
  7. CLARITIN [Concomitant]
     Active Substance: LORATADINE
     Indication: MULTIPLE ALLERGIES
     Dosage: 10 MG, UNK
     Route: 048
  8. VITAMIN D3 [Concomitant]
     Active Substance: CHOLECALCIFEROL
     Indication: VITAMIN D DECREASED
     Dosage: 10000 IU, UNK
     Route: 048
     Dates: start: 201508
  9. PREVACID [Concomitant]
     Active Substance: LANSOPRAZOLE
     Indication: GASTROOESOPHAGEAL REFLUX DISEASE
     Dosage: 30 MG, UNK
     Route: 048
  10. BRINTELLIX [Suspect]
     Active Substance: VORTIOXETINE HYDROBROMIDE
     Indication: NEUROTRANSMITTER LEVEL ALTERED
     Dosage: 5 MG, QD
     Route: 048
     Dates: start: 20150811
  11. LIDOCAINE. [Concomitant]
     Active Substance: LIDOCAINE
     Indication: COMPLEX REGIONAL PAIN SYNDROME
     Dosage: 5 %, UNK
     Route: 061
     Dates: start: 201506
  12. CLONAZEPAM. [Concomitant]
     Active Substance: CLONAZEPAM
     Indication: ANXIETY
     Dosage: 1.25 MG, UNK
     Route: 048
     Dates: start: 201506

REACTIONS (3)
  - Drug administered to patient of inappropriate age [Not Recovered/Not Resolved]
  - Nausea [Not Recovered/Not Resolved]
  - Off label use [Not Recovered/Not Resolved]

NARRATIVE: CASE EVENT DATE: 201508
